FAERS Safety Report 7267180-4 (Version None)
Quarter: 2011Q1

REPORT INFORMATION
  Report Type: 
  Country: None (occurrence: None)
  Receive Date: 20110121
  Receipt Date: 20110106
  Transmission Date: 20110831
  Serious: Yes (Hospitalization)
  Sender: FDA-Public Use
  Company Number: 2011000130

PATIENT
  Age: 64 Year
  Sex: Female

DRUGS (2)
  1. ERLOTINIB(ERLOTINIB) (TABLET) (ERLOTINIB) [Suspect]
     Indication: NON-SMALL CELL LUNG CANCER
     Dosage: 150 MG; CUMULATIVE DOSE, FREQUENCY DAY 2-16 EVERY 3 WEEKS, AFTER COURSES ONCE A DAY.
     Dates: start: 20101229
  2. DOCETAXEL [Suspect]
     Indication: NON-SMALL CELL LUNG CANCER
     Dosage: 130 MG; CUMULATIVE DOSE, ONE PER THREE WEEKS.
     Dates: start: 20101228

REACTIONS (1)
  - FEBRILE NEUTROPENIA [None]
